FAERS Safety Report 15980823 (Version 4)
Quarter: 2019Q2

REPORT INFORMATION
  Report Type: Other
  Country: CA (occurrence: CA)
  Receive Date: 20190219
  Receipt Date: 20190527
  Transmission Date: 20190711
  Serious: Yes (Other)
  Sender: FDA-Public Use
  Company Number: CA-PFIZER INC-2019067538

PATIENT
  Age: 57 Year
  Sex: Female

DRUGS (8)
  1. CARBOPLATIN. [Suspect]
     Active Substance: CARBOPLATIN
     Indication: PERITONEAL CARCINOMA METASTATIC
     Dosage: UNK, FOR 1 HOUR  EVERY 3 WEEKS
     Route: 042
  2. PACLITAXEL. [Suspect]
     Active Substance: PACLITAXEL
     Indication: PERITONEAL CARCINOMA METASTATIC
     Dosage: 1 DF, FOR 3 HOURS, EVERY 3 WEEKS
     Route: 042
  3. ONDANSETRON [Suspect]
     Active Substance: ONDANSETRON
     Indication: NAUSEA
  4. PHOSPHORIC ACID [Concomitant]
     Active Substance: PHOSPHORIC ACID
     Dosage: UNK
  5. ONDANSETRON [Suspect]
     Active Substance: ONDANSETRON
     Indication: VOMITING
     Dosage: UNK, 2X/DAY FOR TWO DAYS FOLLOWING CHEMOTHERAPY
     Route: 065
  6. POTASSIUM PHOSPHATE [POTASSIUM PHOSPHATE DIBASIC] [Concomitant]
     Dosage: UNK
  7. SODIUM CHLORIDE. [Concomitant]
     Active Substance: SODIUM CHLORIDE
     Dosage: UNK
  8. ASTRAGALUS PROPINQUUS [Concomitant]
     Dosage: 3 ASTRAGALUS CAPSULES PER DAY

REACTIONS (24)
  - Abdominal pain [Unknown]
  - Gait disturbance [Unknown]
  - Dizziness [Unknown]
  - Fatigue [Unknown]
  - Insomnia [Unknown]
  - Oral candidiasis [Unknown]
  - Peripheral coldness [Unknown]
  - Hypoaesthesia [Unknown]
  - Pain in extremity [Unknown]
  - Confusional state [Recovered/Resolved]
  - Alopecia [Recovering/Resolving]
  - Anaemia [Unknown]
  - Condition aggravated [Unknown]
  - Asthenia [Unknown]
  - Contusion [Unknown]
  - Decreased appetite [Unknown]
  - Nausea [Unknown]
  - Arthropathy [Recovered/Resolved]
  - Ageusia [Unknown]
  - Erythema [Unknown]
  - Neutropenia [Unknown]
  - Constipation [Unknown]
  - Muscular weakness [Unknown]
  - Thrombocytopenia [Unknown]
